FAERS Safety Report 10260262 (Version 1)
Quarter: 2014Q2

REPORT INFORMATION
  Report Type: Spontaneous
  Country: US (occurrence: US)
  Receive Date: 20140625
  Receipt Date: 20140625
  Transmission Date: 20141212
  Serious: No
  Sender: FDA-Public Use
  Company Number: US-SA-2014SA047903

PATIENT
  Age: 59 Year
  Sex: Female

DRUGS (20)
  1. AUBAGIO [Suspect]
     Indication: MULTIPLE SCLEROSIS
     Dosage: IN THE MORNING
     Route: 065
  2. TYLENOL [Concomitant]
     Dosage: TABLET BY MOUTH AT BEDTIME AS NEEDED
     Route: 048
  3. FOSAMAX [Concomitant]
     Dosage: I TABLET BY MOUTH ONCE A WEEK.
     Route: 048
  4. BUPROPION HYDROCHLORIDE [Concomitant]
     Route: 048
  5. CALCIUM CARBONATE/COLECALCIFEROL [Concomitant]
     Dosage: 1 TABLET BY MOUTH DAILY (EVERY 24 HOURS)
     Route: 048
  6. CALCIUM CITRATE/ERGOCALCIFEROL [Concomitant]
     Dosage: 315-200 MG-UNIT
  7. SINEMET [Concomitant]
     Dosage: 25-100 MG
     Route: 048
  8. CIPRO [Concomitant]
     Indication: URINARY TRACT INFECTION
     Route: 048
  9. VITAMIN D [Concomitant]
     Dosage: DOSE:1000 UNIT(S)
     Route: 048
  10. VALIUM [Concomitant]
     Indication: ANXIETY
     Dosage: 2 MG BY MOUTH EVERY 8 HOURS AS NEEDED.
     Route: 048
  11. NEURONTIN [Concomitant]
     Route: 048
  12. GLUCOSAMINE [Concomitant]
     Indication: OSTEOARTHRITIS
     Dosage: 500-400 MG
  13. NIZORAL [Concomitant]
     Dosage: TOPICALLY TWICE AWEEK
  14. SOLU-MEDROL [Concomitant]
     Dosage: 250 MG BY MOUTH ML EVERY MONTH. TAKES 4 ML
     Route: 048
  15. THERAGRAN [Concomitant]
     Route: 048
  16. DITROPAN XL [Concomitant]
     Route: 048
  17. AFRIN NASAL SPRAY [Concomitant]
     Indication: NASAL CONGESTION
     Dosage: 1 SPRAY INTO EACH NOSTRAL AS NEEDED.
  18. PAXIL [Concomitant]
     Dosage: 1 TABLET BY MOUTH EVERY MORNING.
     Route: 048
  19. SENOKOT-S [Concomitant]
     Indication: CONSTIPATION
     Dosage: 1 TABLET BY MOUTH 2TIMES DAILY; 8.6 TO 50 MG
     Route: 048
  20. SUMATRIPTAN [Concomitant]
     Dosage: 1 SPRAY INTO EACH NOSTRIL AS NEEDED

REACTIONS (1)
  - Alopecia [Not Recovered/Not Resolved]
